FAERS Safety Report 4692279-6 (Version None)
Quarter: 2005Q2

REPORT INFORMATION
  Report Type: 
  Country: None (occurrence: None)
  Receive Date: 20050614
  Receipt Date: 20050601
  Transmission Date: 20051028
  Serious: Yes (Hospitalization)
  Sender: FDA-Public Use
  Company Number: 11415

PATIENT
  Age: 61 Year
  Sex: Male

DRUGS (5)
  1. FLUOROURACIL [Suspect]
     Indication: BILIARY NEOPLASM
     Dosage: 375 MG/M2 OTH IV
     Route: 042
     Dates: start: 20050502
  2. LEUCOVORIN [Suspect]
     Indication: BILIARY NEOPLASM
     Dosage: 25 MG/M2 OTH IV
     Route: 042
     Dates: start: 20050502
  3. GRANISETRON [Concomitant]
  4. INSULIN [Concomitant]
  5. DEXAMETHASONE [Concomitant]

REACTIONS (4)
  - ABDOMINAL PAIN [None]
  - NAUSEA [None]
  - URTICARIA [None]
  - VOMITING [None]
